FAERS Safety Report 5975197-2 (Version None)
Quarter: 2008Q4

REPORT INFORMATION
  Report Type: 
  Country: None (occurrence: None)
  Receive Date: 20081202
  Receipt Date: 20081021
  Transmission Date: 20090506
  Serious: No
  Sender: FDA-Public Use
  Company Number: US-ABBOTT-08P-163-0482902-00

PATIENT
  Sex: Female

DRUGS (2)
  1. LUPRON DEPOT [Suspect]
     Indication: ENDOMETRIOSIS
     Route: 030
     Dates: start: 20080701
  2. LUPRON DEPOT [Suspect]
     Indication: UTERINE LEIOMYOMA

REACTIONS (7)
  - FATIGUE [None]
  - FEELING COLD [None]
  - HOT FLUSH [None]
  - JOINT SWELLING [None]
  - PARAESTHESIA [None]
  - VISION BLURRED [None]
  - VULVOVAGINAL DRYNESS [None]
